FAERS Safety Report 25050726 (Version 1)
Quarter: 2025Q1

REPORT INFORMATION
  Report Type: Spontaneous
  Country: CN (occurrence: CN)
  Receive Date: 20250307
  Receipt Date: 20250307
  Transmission Date: 20250408
  Serious: Yes (Disabling)
  Sender: MERCK SHARP & DOHME LLC
  Company Number: CN-009507513-2258770

PATIENT
  Age: 66 Year
  Sex: Male
  Weight: 69.5 kg

DRUGS (3)
  1. GEMCITABINE [Suspect]
     Active Substance: GEMCITABINE
     Indication: Neoplasm malignant
     Route: 042
     Dates: start: 20241226, end: 20241226
  2. PEMBROLIZUMAB [Suspect]
     Active Substance: PEMBROLIZUMAB
     Indication: Neoplasm malignant
     Route: 042
     Dates: start: 20241226, end: 20241226
  3. CISPLATIN [Suspect]
     Active Substance: CISPLATIN
     Indication: Neoplasm malignant
     Route: 042
     Dates: start: 20241226, end: 20241226

REACTIONS (2)
  - White blood cell count decreased [Recovering/Resolving]
  - Neutrophil count decreased [Recovering/Resolving]

NARRATIVE: CASE EVENT DATE: 20250101
